FAERS Safety Report 6738387-7 (Version None)
Quarter: 2010Q2

REPORT INFORMATION
  Report Type: 
  Country: None (occurrence: None)
  Receive Date: 20100520
  Receipt Date: 20100512
  Transmission Date: 20101027
  Serious: Yes (Hospitalization)
  Sender: FDA-Public Use
  Company Number: 011779

PATIENT
  Sex: Male

DRUGS (1)
  1. KEPPRA [Suspect]
     Indication: CONVULSION
     Dosage: ORAL
     Route: 048

REACTIONS (4)
  - CONVULSION [None]
  - HEAD TITUBATION [None]
  - STRESS [None]
  - TIC [None]
